FAERS Safety Report 16080976 (Version 1)
Quarter: 2019Q1

REPORT INFORMATION
  Report Type: Spontaneous
  Country: US (occurrence: US)
  Receive Date: 20190316
  Receipt Date: 20190316
  Transmission Date: 20190418
  Serious: Yes (Hospitalization)
  Sender: FDA-Public Use
  Company Number: US-VIVIMED-2017SP015261

PATIENT

DRUGS (2)
  1. METRONIDAZOLE. [Suspect]
     Active Substance: METRONIDAZOLE
     Indication: HEPATIC ENCEPHALOPATHY
     Dosage: 500 MG, BID
     Route: 048
  2. METRONIDAZOLE. [Suspect]
     Active Substance: METRONIDAZOLE
     Dosage: 750 MG, BID
     Route: 048

REACTIONS (5)
  - Toxic encephalopathy [Unknown]
  - Abnormal behaviour [Unknown]
  - Balance disorder [Unknown]
  - Cerebral atrophy [None]
  - Confusional state [Unknown]
